FAERS Safety Report 11196210 (Version 1)
Quarter: 2015Q2

REPORT INFORMATION
  Report Type: Spontaneous
  Country: CH (occurrence: CH)
  Receive Date: 20150617
  Receipt Date: 20150617
  Transmission Date: 20150821
  Serious: Yes (Hospitalization)
  Sender: FDA-Public Use
  Company Number: CH-PFIZER INC-2015197334

PATIENT
  Age: 84 Year
  Sex: Male

DRUGS (11)
  1. ALDACTONE [Suspect]
     Active Substance: SPIRONOLACTONE
     Dosage: 50 MG, 1X/DAY
     Route: 048
     Dates: end: 201505
  2. SINTROM [Concomitant]
     Active Substance: ACENOCOUMAROL
     Dosage: UNK
  3. XANAX [Concomitant]
     Active Substance: ALPRAZOLAM
     Dosage: UNK
  4. RAMIPRIL. [Interacting]
     Active Substance: RAMIPRIL
     Dosage: 5 MG, 2X/DAY
     Route: 048
     Dates: end: 201505
  5. AMLODIPINE [Concomitant]
     Active Substance: AMLODIPINE BESYLATE
     Dosage: UNK
  6. EFFIGEL [Concomitant]
     Dosage: UNK
  7. PANTOZOL [Concomitant]
     Active Substance: PANTOPRAZOLE SODIUM
     Dosage: UNK
  8. STILNOX [Concomitant]
     Active Substance: ZOLPIDEM TARTRATE
     Dosage: UNK
  9. METFORMIN [Concomitant]
     Active Substance: METFORMIN HYDROCHLORIDE
     Dosage: UNK
  10. TORASEMID [Concomitant]
     Active Substance: TORSEMIDE
     Dosage: UNK
  11. OXYDERME [Concomitant]
     Dosage: UNK

REACTIONS (4)
  - Drug interaction [Recovered/Resolved]
  - Bradycardia [Recovered/Resolved]
  - Hyperkalaemia [Recovered/Resolved]
  - Cardiac arrest [Recovered/Resolved]

NARRATIVE: CASE EVENT DATE: 201505
